FAERS Safety Report 11020912 (Version 2)
Quarter: 2015Q2

REPORT INFORMATION
  Report Type: Spontaneous
  Country: CH (occurrence: CH)
  Receive Date: 20150413
  Receipt Date: 20150429
  Transmission Date: 20150821
  Serious: Yes (Other)
  Sender: FDA-Public Use
  Company Number: CH-TEVA-553867ISR

PATIENT
  Age: 74 Year
  Sex: Male

DRUGS (2)
  1. AMOXICILLIN/CLAVULANIC ACID [Suspect]
     Active Substance: AMOXICILLIN\CLAVULANIC ACID
     Indication: PARANASAL SINUS HYPERSECRETION
     Route: 065
  2. PHENYTOIN. [Suspect]
     Active Substance: PHENYTOIN
     Indication: PARTIAL SEIZURES
     Dosage: USED FOR MORE THAN 20 YEAR
     Route: 065

REACTIONS (8)
  - Night sweats [Recovered/Resolved]
  - Cough [Recovered/Resolved]
  - Abnormal loss of weight [Recovered/Resolved]
  - Decreased appetite [Recovered/Resolved]
  - Asthenia [Unknown]
  - Anaemia [Unknown]
  - General physical health deterioration [Recovered/Resolved]
  - Thrombocytopenia [Unknown]
